FAERS Safety Report 4334863-5 (Version None)
Quarter: 2004Q2

REPORT INFORMATION
  Report Type: 
  Country: None (occurrence: None)
  Receive Date: 20040405
  Receipt Date: 20040323
  Transmission Date: 20050107
  Serious: Yes (Death)
  Sender: FDA-Public Use
  Company Number: GT-JNJFOC-20040305859

PATIENT
  Sex: 0

DRUGS (1)
  1. REMICADE [Suspect]
     Dosage: 200 MG, INTRAVENOUS
     Route: 042

REACTIONS (1)
  - DEATH [None]
